FAERS Safety Report 18355493 (Version 2)
Quarter: 2020Q4

REPORT INFORMATION
  Report Type: Spontaneous
  Country: ES (occurrence: ES)
  Receive Date: 20201007
  Receipt Date: 20201022
  Transmission Date: 20210114
  Serious: Yes (Other)
  Sender: FDA-Public Use
  Company Number: ES-PFIZER INC-2020384419

PATIENT
  Age: 43 Year
  Sex: Female
  Weight: 67 kg

DRUGS (3)
  1. SALAZOPYRINA [Suspect]
     Active Substance: SULFASALAZINE
     Dosage: 1500 MG, DAILY (3 DF DAILY)
     Dates: start: 2006
  2. SALAZOPYRINA [Suspect]
     Active Substance: SULFASALAZINE
     Dosage: 2000 MG, DAILY (4 DF DAILY)
  3. SALAZOPYRINA [Suspect]
     Active Substance: SULFASALAZINE
     Indication: ANKYLOSING SPONDYLITIS
     Dosage: 2000 MG, DAILY (4 DOSE FORM (DF) DAILY)
     Dates: start: 20050530

REACTIONS (5)
  - Stress [Unknown]
  - Uveitis [Recovered/Resolved]
  - Drug effective for unapproved indication [Unknown]
  - Off label use [Unknown]
  - Product use in unapproved indication [Unknown]

NARRATIVE: CASE EVENT DATE: 2005
